FAERS Safety Report 8392575-5 (Version None)
Quarter: 2012Q2

REPORT INFORMATION
  Report Type: 
  Country: None (occurrence: None)
  Receive Date: 20120529
  Receipt Date: 20120518
  Transmission Date: 20120825
  Serious: Yes (Other)
  Sender: FDA-Public Use
  Company Number: JP-VERTEX PHARMACEUTICALS INC.-AE-2012-007726

PATIENT
  Age: 55 Year
  Sex: Female

DRUGS (10)
  1. RIBAVIRIN [Concomitant]
     Indication: HEPATITIS C
     Route: 048
     Dates: start: 20120313, end: 20120318
  2. RIBAVIRIN [Concomitant]
     Route: 048
     Dates: start: 20120319, end: 20120415
  3. PEGINTERFERON ALFA-2B [Concomitant]
     Route: 051
     Dates: start: 20120313
  4. TELAVIC (TELAPREVIR) [Suspect]
     Indication: HEPATITIS C
     Route: 048
     Dates: start: 20120313
  5. RIBAVIRIN [Concomitant]
     Route: 048
     Dates: start: 20120416
  6. RABEPRAZOLE SODIUM [Concomitant]
     Route: 048
  7. FEROTYM [Concomitant]
     Route: 048
  8. CLARITIN REDITABS [Concomitant]
     Route: 048
  9. LIVALO [Concomitant]
     Route: 048
  10. EPADEL S [Concomitant]
     Route: 048

REACTIONS (2)
  - RASH [None]
  - ANAEMIA [None]
